FAERS Safety Report 6657303-X (Version None)
Quarter: 2010Q1

REPORT INFORMATION
  Report Type: 
  Country: None (occurrence: None)
  Receive Date: 20100330
  Receipt Date: 20100325
  Transmission Date: 20100710
  Serious: Yes (Life-Threatening, Hospitalization)
  Sender: FDA-Public Use
  Company Number: JP-BRISTOL-MYERS SQUIBB COMPANY-14931786

PATIENT
  Age: 66 Year
  Sex: Male
  Weight: 70 kg

DRUGS (6)
  1. ERBITUX [Suspect]
     Indication: RECTAL CANCER
     Dosage: 693 MG ON 02DEC09 445 MG FROM 09DEC09
     Route: 042
     Dates: start: 20091202
  2. IRINOTECAN HYDROCHLORIDE [Suspect]
     Indication: RECTAL CANCER
     Route: 042
     Dates: start: 20091202
  3. TEGAFUR + GIMERACIL + OTERACIL POTASSIUM [Suspect]
     Indication: RECTAL CANCER
     Dosage: FORM = CAPSULES
     Route: 048
     Dates: start: 20091202, end: 20091209
  4. POLARAMINE [Concomitant]
     Indication: PREMEDICATION
     Route: 042
  5. DECADRON [Concomitant]
     Indication: PREMEDICATION
     Route: 042
  6. PRIMPERAN INJ [Concomitant]
     Indication: ANTIEMETIC SUPPORTIVE CARE
     Route: 042
     Dates: start: 20091207, end: 20091216

REACTIONS (3)
  - ANAEMIA [None]
  - GASTROINTESTINAL HAEMORRHAGE [None]
  - HYPOTENSION [None]
